FAERS Safety Report 8978040 (Version 2)
Quarter: 2012Q4

REPORT INFORMATION
  Report Type: Spontaneous
  Country: US (occurrence: None)
  Receive Date: 20120814
  Receipt Date: 20120905
  Transmission Date: 20130627
  Serious: Yes (Hospitalization)
  Sender: FDA-Public Use
  Company Number: 120347

PATIENT
  Age: 70 Year
  Sex: Male
  Weight: 87.54 kg

DRUGS (9)
  1. HALFLYTELY WITH BISACODYL TABLET [Suspect]
     Indication: BOWEL PREPARATION
     Route: 048
     Dates: start: 20120207, end: 20120207
  2. DIOVAN [Concomitant]
  3. MAGNESIUM [Concomitant]
  4. MOBIC [Concomitant]
  5. NEXIUM [Concomitant]
  6. CLOPIDOGREL [Concomitant]
  7. FOLIC ACID [Concomitant]
  8. HYDROCHLOROTHIAZIDE [Concomitant]
  9. SIMVASTATIN [Concomitant]

REACTIONS (28)
  - Tension headache [None]
  - Vision blurred [None]
  - Balance disorder [None]
  - Sleep disorder [None]
  - Decreased vibratory sense [None]
  - Haematuria [None]
  - Micturition urgency [None]
  - Sinus tachycardia [None]
  - Bundle branch block right [None]
  - Computerised tomogram head abnormal [None]
  - Urine bilirubin increased [None]
  - Protein urine present [None]
  - Bacterial test positive [None]
  - Urinary casts [None]
  - Blood glucose increased [None]
  - Prothrombin time prolonged [None]
  - Activated partial thromboplastin time prolonged [None]
  - White blood cell count increased [None]
  - Haematocrit decreased [None]
  - Neutrophil percentage increased [None]
  - Granulocyte count increased [None]
  - Red blood cell sedimentation rate increased [None]
  - Migraine [None]
  - Vitamin B12 deficiency [None]
  - Renal failure acute [None]
  - Blood calcium decreased [None]
  - Haemoglobin decreased [None]
  - Blood potassium decreased [None]
